FAERS Safety Report 7797196-0 (Version None)
Quarter: 2011Q4

REPORT INFORMATION
  Report Type: 
  Country: None (occurrence: None)
  Receive Date: 20111003
  Receipt Date: 20110926
  Transmission Date: 20120403
  Serious: Yes (Hospitalization, Disabling, Other)
  Sender: FDA-Public Use
  Company Number: 2010SP020793

PATIENT
  Age: 34 Year
  Sex: Female
  Weight: 67.586 kg

DRUGS (5)
  1. MULTI-VITAMIN [Concomitant]
  2. ASPIRIN [Suspect]
     Indication: DEEP VEIN THROMBOSIS
  3. CLARITIN [Concomitant]
  4. NUVARING [Suspect]
  5. NUVARING [Suspect]
     Indication: PRODUCT USED FOR UNKNOWN INDICATION
     Dates: start: 20090310, end: 20090730

REACTIONS (29)
  - HEART RATE IRREGULAR [None]
  - VARICOSE VEIN [None]
  - ARTHRITIS [None]
  - THROMBOPHLEBITIS [None]
  - PHLEBITIS [None]
  - VIRAL INFECTION [None]
  - URINARY TRACT INFECTION [None]
  - DEEP VEIN THROMBOSIS [None]
  - MITRAL VALVE INCOMPETENCE [None]
  - DEPRESSION [None]
  - FATIGUE [None]
  - CYTOMEGALOVIRUS TEST POSITIVE [None]
  - EPSTEIN-BARR VIRUS ANTIGEN POSITIVE [None]
  - PNEUMONIA [None]
  - PNEUMONITIS [None]
  - MUSCLE SPASMS [None]
  - PRESYNCOPE [None]
  - PULMONARY EMBOLISM [None]
  - OVARIAN CYST [None]
  - HYPOKALAEMIA [None]
  - TRICUSPID VALVE INCOMPETENCE [None]
  - BRONCHITIS [None]
  - RESTLESS LEGS SYNDROME [None]
  - VAGINAL DISCHARGE [None]
  - ANXIETY [None]
  - OEDEMA PERIPHERAL [None]
  - PELVIC PAIN [None]
  - ANAEMIA [None]
  - PULMONARY VALVE INCOMPETENCE [None]
